FAERS Safety Report 10533209 (Version 1)
Quarter: 2014Q4

REPORT INFORMATION
  Report Type: Spontaneous
  Country: US (occurrence: None)
  Receive Date: 20141021
  Receipt Date: 20141021
  Transmission Date: 20150529
  Serious: Yes (Death, Hospitalization)
  Sender: FDA-Public Use
  Company Number: None

PATIENT
  Age: 70 Year
  Sex: Male
  Weight: 88.2 kg

DRUGS (3)
  1. DEXAMETHASONE. [Suspect]
     Active Substance: DEXAMETHASONE
     Dates: end: 20141004
  2. VELCADE [Suspect]
     Active Substance: BORTEZOMIB
     Dates: end: 20141003
  3. LENALIDOMIDE [Suspect]
     Active Substance: LENALIDOMIDE
     Dosage: PATIETN HOSPITALIZED ON 10/614.
     Dates: end: 20141005

REACTIONS (12)
  - Chills [None]
  - Hypotension [None]
  - Pathogen resistance [None]
  - Hypoxia [None]
  - Respiratory disorder [None]
  - Staphylococcus test positive [None]
  - Culture urine positive [None]
  - Atrial fibrillation [None]
  - Chest pain [None]
  - Dyspnoea [None]
  - Bacteraemia [None]
  - Productive cough [None]

NARRATIVE: CASE EVENT DATE: 20141006
